FAERS Safety Report 5769860-6 (Version None)
Quarter: 2008Q2

REPORT INFORMATION
  Report Type: 
  Country: None (occurrence: None)
  Receive Date: 20080613
  Receipt Date: 20080410
  Transmission Date: 20081010
  Serious: No
  Sender: FDA-Public Use
  Company Number: US-ABBOTT-08P-163-0446826-00

PATIENT
  Sex: Female
  Weight: 104.42 kg

DRUGS (5)
  1. HUMIRA [Suspect]
     Indication: ANKYLOSING SPONDYLITIS
     Route: 058
     Dates: start: 20080401
  2. HUMIRA [Suspect]
     Dosage: PRE-FILLED SYRINGE
     Dates: start: 20070101, end: 20080401
  3. SULFASALIZINE [Concomitant]
     Indication: ANKYLOSING SPONDYLITIS
     Dosage: 3 PILLS TWICE DAILY
     Route: 048
     Dates: start: 20010101
  4. METHOTREXATE [Concomitant]
     Indication: ANKYLOSING SPONDYLITIS
     Dosage: 7 PILLS
     Route: 048
     Dates: start: 20010101
  5. FOLIC ACID [Concomitant]
     Indication: ANKYLOSING SPONDYLITIS
     Route: 048
     Dates: start: 20010101

REACTIONS (1)
  - ACCIDENTAL EXPOSURE [None]
